FAERS Safety Report 8125270-8 (Version None)
Quarter: 2012Q1

REPORT INFORMATION
  Report Type: 
  Country: None (occurrence: None)
  Receive Date: 20120209
  Receipt Date: 20120202
  Transmission Date: 20120608
  Serious: Yes (Other)
  Sender: FDA-Public Use
  Company Number: US-ELI_LILLY_AND_COMPANY-US201202001184

PATIENT
  Sex: Male

DRUGS (11)
  1. OPTIVE [Concomitant]
     Dosage: 1 DF, OTHER
  2. ZEGERID [Concomitant]
     Dosage: 1 DF, UNK
  3. ALL DAY ALLERGY [Concomitant]
  4. PLAVIX [Concomitant]
     Dosage: 75 MG, UNK
  5. TERBINAFINE HCL [Concomitant]
     Dosage: 250 MG, UNK
  6. LOVAZA [Concomitant]
  7. CIALIS [Suspect]
     Indication: ERECTILE DYSFUNCTION
     Dosage: 5 MG, QD
     Dates: start: 20111101, end: 20111201
  8. POTASSIUM CHLORIDE [Concomitant]
     Dosage: 10 MEQ, UNK
  9. STROVITE [Concomitant]
  10. XANAX [Concomitant]
     Dosage: 0.5 MG, UNK
  11. EXFORGE [Concomitant]

REACTIONS (1)
  - VISUAL ACUITY REDUCED [None]
